FAERS Safety Report 8939106 (Version 3)
Quarter: 2013Q1

REPORT INFORMATION
  Report Type: Spontaneous
  Country: US (occurrence: US)
  Receive Date: 20121203
  Receipt Date: 20130109
  Transmission Date: 20140127
  Serious: No
  Sender: FDA-Public Use
  Company Number: US-PFIZER INC-2012300010

PATIENT
  Age: 71 Year
  Sex: Male
  Weight: 97.51 kg

DRUGS (8)
  1. ATORVASTATIN CALCIUM [Suspect]
     Indication: BLOOD CHOLESTEROL ABNORMAL
     Dosage: 40 MG, DAILY
     Route: 048
     Dates: end: 2012
  2. ATORVASTATIN CALCIUM [Suspect]
     Indication: CORONARY ARTERY DISEASE
     Dosage: 20 MG, QD
     Route: 048
     Dates: end: 20121128
  3. ASPIRIN [Concomitant]
     Indication: ANTICOAGULANT THERAPY
     Dosage: 162 MG, 1X/DAY
     Dates: start: 2000
  4. NYSTAN [Concomitant]
     Indication: BLOOD CHOLESTEROL ABNORMAL
     Dosage: 1000 MG, 1X/DAY
     Dates: start: 2000
  5. RAMIPRIL [Concomitant]
     Indication: CARDIAC DISORDER
     Dosage: 5 MG, 1X/DAY
     Route: 048
     Dates: start: 2000
  6. TOPROL XL [Concomitant]
     Dosage: 50 MG, 1X/DAY
     Dates: start: 2000
  7. TOPROL [Concomitant]
     Dosage: 50 UNK, 1X/DAY
  8. NIASPAN [Concomitant]
     Dosage: 1000 UNK, 1X/DAY

REACTIONS (3)
  - Drug ineffective [Unknown]
  - Pruritus [Recovered/Resolved]
  - Urticaria [Recovered/Resolved]
